FAERS Safety Report 18197431 (Version 1)
Quarter: 2020Q3

REPORT INFORMATION
  Report Type: Spontaneous
  Country: US (occurrence: US)
  Receive Date: 20200826
  Receipt Date: 20200826
  Transmission Date: 20201103
  Serious: Yes (Death, Hospitalization, Other)
  Sender: FDA-Public Use
  Company Number: US-AUROBINDO-AUR-APL-2012-03392

PATIENT
  Age: 65 Year
  Sex: Male

DRUGS (4)
  1. VITAMIN C [Interacting]
     Active Substance: ASCORBIC ACID
     Indication: SMALL CELL LUNG CANCER METASTATIC
     Dosage: BIWEEKLY
     Route: 065
  2. MISTLETOE [Interacting]
     Active Substance: VISCUM ALBUM FRUITING TOP
     Indication: SMALL CELL LUNG CANCER METASTATIC
     Dosage: ONCE IN 3 DAYS
     Route: 065
  3. VALPROIC ACID. [Interacting]
     Active Substance: VALPROIC ACID
     Indication: PRODUCT USED FOR UNKNOWN INDICATION
     Dosage: UNK
     Route: 065
  4. LEVETIRACETAM. [Suspect]
     Active Substance: LEVETIRACETAM
     Indication: PRODUCT USED FOR UNKNOWN INDICATION
     Dosage: UNK
     Route: 065

REACTIONS (12)
  - Death [Fatal]
  - Cerebral haemorrhage [Unknown]
  - Fatigue [Unknown]
  - Neurological decompensation [Unknown]
  - Confusional state [Unknown]
  - Condition aggravated [Unknown]
  - Agitation [Unknown]
  - Asthenia [Unknown]
  - Drug interaction [Unknown]
  - Oedema [Unknown]
  - Seizure [Unknown]
  - Disease progression [Unknown]
